FAERS Safety Report 6711092-9 (Version None)
Quarter: 2010Q2

REPORT INFORMATION
  Report Type: 
  Country: None (occurrence: None)
  Receive Date: 20100505
  Receipt Date: 20090518
  Transmission Date: 20101027
  Serious: No
  Sender: FDA-Public Use
  Company Number: US-KINGPHARMUSA00001-K200900601

PATIENT
  Sex: Male
  Weight: 85 kg

DRUGS (7)
  1. AVINZA [Suspect]
     Indication: NECK PAIN
     Dosage: 30 MG, QD
     Route: 048
     Dates: start: 20090401, end: 20090513
  2. AVINZA [Suspect]
     Indication: BONE PAIN
  3. PERCOCET [Concomitant]
     Indication: BREAKTHROUGH PAIN
     Dosage: 7.5/325
     Route: 048
  4. CYMBALTA [Concomitant]
     Indication: NEURALGIA
     Dosage: 20 MG, QD
     Route: 048
  5. IBUPROFEN [Concomitant]
     Indication: PAIN
     Dosage: 800 MG, PRN
     Route: 048
  6. IBUPROFEN [Concomitant]
     Indication: INFLAMMATION
  7. ZANAFLEX [Concomitant]
     Dosage: 4 MG, QHS
     Route: 048

REACTIONS (5)
  - DIARRHOEA [None]
  - HYPERHIDROSIS [None]
  - INSOMNIA [None]
  - NAUSEA [None]
  - WITHDRAWAL SYNDROME [None]
